FAERS Safety Report 11845033 (Version 1)
Quarter: 2015Q4

REPORT INFORMATION
  Report Type: Spontaneous
  Country: IT (occurrence: IT)
  Receive Date: 20151217
  Receipt Date: 20151217
  Transmission Date: 20160305
  Serious: Yes (Hospitalization)
  Sender: FDA-Public Use
  Company Number: IT-BAYER-2015-485463

PATIENT
  Sex: Male

DRUGS (12)
  1. TAMSULOSIN HYDROCHLORIDE. [Concomitant]
     Active Substance: TAMSULOSIN HYDROCHLORIDE
     Dosage: 4 MG, QD
     Route: 048
  2. FOLINA [Concomitant]
     Active Substance: FOLIC ACID
     Dosage: 5 MG, QD
     Route: 048
  3. AVODART [Concomitant]
     Active Substance: DUTASTERIDE
     Dosage: 5 MG, QD
     Route: 048
  4. EPOETIN NOS [Concomitant]
     Active Substance: ERYTHROPOIETIN
     Dosage: 12000 IU, QD
     Route: 058
  5. ROCALTROL [Concomitant]
     Active Substance: CALCITRIOL
     Dosage: 5 MG, QD
     Route: 048
  6. BENEXOL B [Concomitant]
     Dosage: 1 DF, QD
     Route: 048
  7. PANTORC [Concomitant]
     Active Substance: PANTOPRAZOLE SODIUM
     Dosage: 40 MG, QD
     Route: 048
  8. ALLOPURINOL. [Concomitant]
     Active Substance: ALLOPURINOL
     Dosage: 100 MG, QD
     Route: 048
  9. RANEXA [Concomitant]
     Active Substance: RANOLAZINE
     Dosage: 750 MG, QD
     Route: 048
  10. CARDIOASPIRIN [Suspect]
     Active Substance: ASPIRIN
     Indication: THROMBOSIS PROPHYLAXIS
     Dosage: 100 MG, QD
     Route: 048
  11. NORVASC [Concomitant]
     Active Substance: AMLODIPINE BESYLATE
     Dosage: 5 MG, QD
     Route: 048
  12. MINITRAN [Concomitant]
     Active Substance: NITROGLYCERIN
     Dosage: 5 MG, QD
     Route: 062

REACTIONS (3)
  - Wound [Recovering/Resolving]
  - Back injury [Recovering/Resolving]
  - Subdural haematoma [Recovering/Resolving]
